FAERS Safety Report 21581350 (Version 6)
Quarter: 2023Q1

REPORT INFORMATION
  Report Type: Report from Study
  Country: CA (occurrence: CA)
  Receive Date: 20221111
  Receipt Date: 20230304
  Transmission Date: 20230417
  Serious: Yes (Other)
  Sender: FDA-Public Use
  Company Number: CA-AMGEN-CANSL2022095181

PATIENT
  Age: 62 Year
  Sex: Male

DRUGS (7)
  1. AVSOLA [Suspect]
     Active Substance: INFLIXIMAB-AXXQ
     Indication: Crohn^s disease
     Dosage: 5 MILLIGRAM/KILOGRAM, Q8WK (WEEK 0, 2, 6, THEN Q 8)
     Route: 065
     Dates: start: 20220530, end: 20230224
  2. AVSOLA [Suspect]
     Active Substance: INFLIXIMAB-AXXQ
     Dosage: 5 MILLIGRAM/KILOGRAM, Q6WK
     Route: 065
  3. VENTOLIN [Concomitant]
     Active Substance: ALBUTEROL SULFATE
     Dosage: UNK, Q2WK PRN
  4. PROTEIN [Concomitant]
     Active Substance: PROTEIN
     Indication: Product used for unknown indication
     Route: 065
  5. PROTEIN [Concomitant]
     Active Substance: PROTEIN
     Route: 065
  6. PROTEIN [Concomitant]
     Active Substance: PROTEIN
     Route: 065
  7. PROTEIN [Concomitant]
     Active Substance: PROTEIN
     Route: 050

REACTIONS (22)
  - Crohn^s disease [Not Recovered/Not Resolved]
  - Syncope [Unknown]
  - Therapeutic response shortened [Unknown]
  - Therapy non-responder [Unknown]
  - Neck pain [Unknown]
  - Pain in extremity [Unknown]
  - Swelling [Unknown]
  - Pain [Recovered/Resolved]
  - Lower respiratory tract congestion [Recovering/Resolving]
  - Sleep disorder due to a general medical condition [Unknown]
  - Bone pain [Unknown]
  - Fatigue [Not Recovered/Not Resolved]
  - Arthralgia [Not Recovered/Not Resolved]
  - Rash [Unknown]
  - Hypertension [Unknown]
  - Pallor [Recovered/Resolved]
  - Hyperhidrosis [Recovered/Resolved]
  - Hypotension [Recovered/Resolved]
  - Blood pressure increased [Unknown]
  - Asthenia [Recovered/Resolved]
  - Joint swelling [Unknown]
  - Arthritis [Not Recovered/Not Resolved]

NARRATIVE: CASE EVENT DATE: 20220101
